FAERS Safety Report 9484774 (Version 2)
Quarter: 2013Q3

REPORT INFORMATION
  Report Type: Spontaneous
  Country: US (occurrence: US)
  Receive Date: 20130828
  Receipt Date: 20130911
  Transmission Date: 20140515
  Serious: Yes (Death)
  Sender: FDA-Public Use
  Company Number: US-GLAXOSMITHKLINE-A1039370A

PATIENT
  Age: 44 Year
  Sex: Female

DRUGS (3)
  1. TYKERB [Suspect]
     Indication: MALIGNANT NIPPLE NEOPLASM
     Dosage: 1250MG PER DAY
     Route: 048
     Dates: start: 20130616
  2. HERCEPTIN [Concomitant]
  3. RADIOTHERAPY [Concomitant]

REACTIONS (2)
  - Death [Fatal]
  - Breast cancer [Fatal]
